FAERS Safety Report 21416451 (Version 1)
Quarter: 2022Q4

REPORT INFORMATION
  Report Type: Report from Study
  Country: CL (occurrence: CL)
  Receive Date: 20221006
  Receipt Date: 20221006
  Transmission Date: 20230112
  Serious: Yes (Hospitalization)
  Sender: FDA-Public Use
  Company Number: CL-NOVARTISPH-NVSC2022CL223422

PATIENT
  Age: 14 Year
  Sex: Female
  Weight: 45 kg

DRUGS (1)
  1. OMNITROPE [Suspect]
     Active Substance: SOMATROPIN
     Indication: Product used for unknown indication
     Dosage: 1.4 MG, QD (1.4MG/10MG/1.5ML)
     Route: 058
     Dates: start: 20210421, end: 20220401

REACTIONS (2)
  - Renal disorder [Unknown]
  - Illness [Unknown]

NARRATIVE: CASE EVENT DATE: 20220401
